FAERS Safety Report 25220672 (Version 3)
Quarter: 2025Q2

REPORT INFORMATION
  Report Type: Spontaneous
  Country: DE (occurrence: DE)
  Receive Date: 20250421
  Receipt Date: 20250606
  Transmission Date: 20250717
  Serious: Yes (Death, Hospitalization)
  Sender: ROCHE
  Company Number: CH-ROCHE-10000254715

PATIENT
  Sex: Male

DRUGS (1)
  1. AVASTIN [Suspect]
     Active Substance: BEVACIZUMAB
     Indication: Hemiplegia
     Route: 065

REACTIONS (5)
  - Glioblastoma [Fatal]
  - Headache [Fatal]
  - Off label use [Unknown]
  - Disease progression [Fatal]
  - Blood pressure increased [Fatal]
